FAERS Safety Report 7482933-5 (Version None)
Quarter: 2011Q2

REPORT INFORMATION
  Report Type: 
  Country: None (occurrence: None)
  Receive Date: 20110516
  Receipt Date: 20110505
  Transmission Date: 20111010
  Serious: Yes (Other)
  Sender: FDA-Public Use
  Company Number: US-MYLANLABS-2011S1008356

PATIENT
  Age: 14 Year
  Sex: Female
  Weight: 68.04 kg

DRUGS (3)
  1. AMNESTEEM [Suspect]
     Indication: ACNE
     Route: 048
     Dates: start: 20110304, end: 20110419
  2. AMNESTEEM [Suspect]
     Route: 048
     Dates: start: 20110304, end: 20110419
  3. BENADRYL [Concomitant]

REACTIONS (2)
  - SUICIDAL IDEATION [None]
  - SUICIDE ATTEMPT [None]
